FAERS Safety Report 5232806-3 (Version None)
Quarter: 2007Q1

REPORT INFORMATION
  Report Type: 
  Country: None (occurrence: None)
  Receive Date: 20070206
  Receipt Date: 20070206
  Transmission Date: 20070707
  Serious: Yes (Other)
  Sender: FDA-Public Use
  Company Number: None

PATIENT
  Age: 35 Year
  Sex: Female
  Weight: 83.9154 kg

DRUGS (1)
  1. LOESTRIN 24 FE WARNER CHILLCOT [Suspect]
     Indication: INFERTILITY
     Dosage: 1 A DAY PO
     Route: 048
     Dates: start: 20070124, end: 20070129

REACTIONS (1)
  - BURNING SENSATION [None]
